FAERS Safety Report 6691876-6 (Version None)
Quarter: 2010Q2

REPORT INFORMATION
  Report Type: 
  Country: None (occurrence: None)
  Receive Date: 20100422
  Receipt Date: 20100420
  Transmission Date: 20101027
  Serious: Yes (Hospitalization)
  Sender: FDA-Public Use
  Company Number: US-ASTRAZENECA-2010SE17536

PATIENT
  Sex: Female

DRUGS (3)
  1. SEROQUEL XR [Suspect]
     Indication: BIPOLAR I DISORDER
     Dosage: DAILY
     Route: 048
  2. EFFEXOR XR [Concomitant]
  3. WELLBUTRIN [Concomitant]

REACTIONS (1)
  - SEROTONIN SYNDROME [None]
